FAERS Safety Report 5732819-9 (Version None)
Quarter: 2008Q2

REPORT INFORMATION
  Report Type: 
  Country: None (occurrence: None)
  Receive Date: 20080507
  Receipt Date: 20080507
  Transmission Date: 20081010
  Serious: Yes (Life-Threatening, Hospitalization, Other)
  Sender: FDA-Public Use
  Company Number: None

PATIENT
  Age: 22 Year
  Sex: Male
  Weight: 63.5036 kg

DRUGS (1)
  1. TRAMADOL HCL [Suspect]
     Indication: BACK PAIN
     Dosage: TAKE 2 EVERY 4-6 HOURS 4-6 HOURS PO
     Route: 048

REACTIONS (3)
  - ANOREXIA [None]
  - CONVULSION [None]
  - DEPRESSION [None]
